FAERS Safety Report 22532228 (Version 1)
Quarter: 2023Q2

REPORT INFORMATION
  Report Type: Report from Study
  Country: AU (occurrence: None)
  Receive Date: 20230607
  Receipt Date: 20230607
  Transmission Date: 20230722
  Serious: Yes (Death)
  Sender: FDA-Public Use
  Company Number: 2023A129847

PATIENT
  Age: 54 Year
  Sex: Male

DRUGS (7)
  1. QUETIAPINE [Suspect]
     Active Substance: QUETIAPINE
     Dosage: 0.1 MG/L
     Route: 048
  2. ALPRAZOLAM [Suspect]
     Active Substance: ALPRAZOLAM
     Dosage: 0.02 MG/L
  3. ALCOHOL [Suspect]
     Active Substance: ALCOHOL
     Dosage: 0.29 MG/L
  4. FLUVOXAMINE [Suspect]
     Active Substance: FLUVOXAMINE
     Dosage: 1.2 MG/L
  5. ACETAMINOPHEN [Suspect]
     Active Substance: ACETAMINOPHEN
  6. VENLAFAXINE [Suspect]
     Active Substance: VENLAFAXINE HYDROCHLORIDE
     Dosage: 1.2 MG/L
  7. DULOXETINE [Suspect]
     Active Substance: DULOXETINE

REACTIONS (2)
  - Toxicity to various agents [Fatal]
  - Cardiomegaly [Fatal]
